FAERS Safety Report 11080098 (Version 1)
Quarter: 2015Q2

REPORT INFORMATION
  Report Type: Spontaneous
  Country: DE (occurrence: DE)
  Receive Date: 20150430
  Receipt Date: 20150430
  Transmission Date: 20150821
  Serious: Yes (Other)
  Sender: FDA-Public Use
  Company Number: DE-TEVA-559153GER

PATIENT
  Age: 46 Year
  Sex: Male

DRUGS (10)
  1. VALPROIC ACID. [Suspect]
     Active Substance: VALPROIC ACID
     Route: 065
  2. HERBAL NOS [Concomitant]
     Active Substance: HERBALS
     Indication: VIRAL INFECTION
     Dosage: 20 GTT DAILY;
     Route: 065
     Dates: start: 20110226, end: 20110301
  3. CARDIOASPIRIN [Suspect]
     Active Substance: ASPIRIN
     Route: 065
  4. CARBAMAZEPINE. [Suspect]
     Active Substance: CARBAMAZEPINE
     Route: 065
  5. EUTHYROX [Suspect]
     Active Substance: LEVOTHYROXINE SODIUM
     Route: 065
  6. LANSOPRAZOLE. [Suspect]
     Active Substance: LANSOPRAZOLE
     Route: 065
  7. CANRENOIC ACID [Suspect]
     Active Substance: CANRENOIC ACID
     Route: 065
  8. OLANZAPINE. [Suspect]
     Active Substance: OLANZAPINE
     Route: 065
  9. FUROSEMIDE. [Suspect]
     Active Substance: FUROSEMIDE
     Route: 065
  10. ALLOPURINOL. [Suspect]
     Active Substance: ALLOPURINOL
     Route: 065

REACTIONS (1)
  - Drug-induced liver injury [Unknown]
